FAERS Safety Report 13679152 (Version 2)
Quarter: 2017Q2

REPORT INFORMATION
  Report Type: Spontaneous
  Country: RU (occurrence: RU)
  Receive Date: 20170622
  Receipt Date: 20170628
  Transmission Date: 20170830
  Serious: Yes (Disabling, Other)
  Sender: FDA-Public Use
  Company Number: RU-ASTRAZENECA-2017SE64519

PATIENT
  Age: 55 Year
  Sex: Female
  Weight: 50 kg

DRUGS (1)
  1. SYMBICORT [Suspect]
     Active Substance: BUDESONIDE\FORMOTEROL FUMARATE DIHYDRATE
     Indication: ASTHMA
     Dosage: 160/4.5 MCG, DOSE AND FREQUENCY UNKNOWN UNKNOWN
     Route: 055
     Dates: end: 201603

REACTIONS (6)
  - Thrombosis [Unknown]
  - Dizziness [Not Recovered/Not Resolved]
  - Thrombotic stroke [Recovered/Resolved]
  - Visual impairment [Recovered/Resolved]
  - Aphasia [Recovered/Resolved]
  - Stress at work [Unknown]

NARRATIVE: CASE EVENT DATE: 20170315
